FAERS Safety Report 23570653 (Version 4)
Quarter: 2025Q4

REPORT INFORMATION
  Report Type: Report from Study
  Country: EU (occurrence: EU)
  Receive Date: 20240227
  Receipt Date: 20251223
  Transmission Date: 20260117
  Serious: Yes (Death, Other)
  Sender: MYLAN
  Company Number: EU-ROCHE-3452556

PATIENT
  Age: 52 Year
  Sex: Female
  Weight: 58 kg

DRUGS (172)
  1. PACLITAXEL [Suspect]
     Active Substance: PACLITAXEL
     Indication: HER2 positive breast cancer
     Dosage: QW (MOST RECENT DOSE: 11/FEB/2020)
     Dates: start: 20190813, end: 20200211
  2. PACLITAXEL [Suspect]
     Active Substance: PACLITAXEL
     Dosage: Q3W (MOST RECENT DOSE: 11/FEB/2020)
     Dates: start: 20191214
  3. PACLITAXEL [Suspect]
     Active Substance: PACLITAXEL
     Dosage: UNK, Q3W (MOST RECENT DOSE: 03/JAN/2021)
     Dates: start: 20201013, end: 20210103
  4. EFUDEX [Suspect]
     Active Substance: FLUOROURACIL
     Indication: HER2 positive breast cancer
     Dosage: UNK, Q3W(MOST RECENT DOSE: 03/JAN/2021)
     Dates: start: 20201013, end: 20210103
  5. NAVELBINE [Suspect]
     Active Substance: VINORELBINE TARTRATE
     Indication: HER2 positive breast cancer
     Dosage: UNK, QW
     Dates: start: 20200310, end: 20201001
  6. ADRUCIL [Suspect]
     Active Substance: FLUOROURACIL
     Indication: HER2 positive breast cancer
     Dosage: UNK (3 WEEKS), MOST RECENT DOSE: 03/JAN/2021
     Dates: start: 20201013
  7. ADRUCIL [Suspect]
     Active Substance: FLUOROURACIL
     Dosage: UNK, QW
  8. GEMZAR [Suspect]
     Active Substance: GEMCITABINE HYDROCHLORIDE
     Indication: HER2 positive breast cancer
     Dosage: UNK UNK, Q3W
     Dates: start: 20221214, end: 20221230
  9. XELODA [Suspect]
     Active Substance: CAPECITABINE
     Indication: HER2 positive breast cancer
     Dosage: 1800 MICROGRAM, BID
     Route: 061
     Dates: start: 20180529, end: 20180820
  10. XELODA [Suspect]
     Active Substance: CAPECITABINE
     Dosage: 1300 MICROGRAM, BID
     Route: 061
     Dates: start: 20181115, end: 20181206
  11. XELODA [Suspect]
     Active Substance: CAPECITABINE
     Dosage: 1500 MICROGRAM, BID
     Route: 061
     Dates: start: 20180821, end: 20181114
  12. XELODA [Suspect]
     Active Substance: CAPECITABINE
     Dosage: 3600 MICROGRAM, QD
     Dates: start: 20180529, end: 20180820
  13. XELODA [Suspect]
     Active Substance: CAPECITABINE
     Dosage: 3000 MICROGRAM, QD
     Route: 061
     Dates: start: 20180821, end: 20181114
  14. XELODA [Suspect]
     Active Substance: CAPECITABINE
     Dosage: 1500 MILLIGRAM, QD
     Route: 061
     Dates: start: 20180821, end: 20181114
  15. XELODA [Suspect]
     Active Substance: CAPECITABINE
     Dosage: 1800 MILLIGRAM, QD
     Route: 061
     Dates: start: 20180529, end: 20180820
  16. XELODA [Suspect]
     Active Substance: CAPECITABINE
     Dosage: 1300 MILLIGRAM, QD
     Route: 061
     Dates: start: 20181115, end: 20181206
  17. TAXOTERE [Suspect]
     Active Substance: DOCETAXEL
     Indication: HER2 positive breast cancer
     Dosage: UNK UNK, Q3W
     Dates: start: 20210104, end: 20210629
  18. HERCEPTIN [Suspect]
     Active Substance: TRASTUZUMAB
     Indication: HER2 positive breast cancer
     Dosage: Q3W
     Dates: start: 20180529
  19. HERCEPTIN [Suspect]
     Active Substance: TRASTUZUMAB
     Dosage: UNK (3 WEEKS)
     Dates: start: 20180529, end: 20190729
  20. HERCEPTIN [Suspect]
     Active Substance: TRASTUZUMAB
     Dosage: UNK (3 WEEKS)
     Dates: start: 20190117
  21. HERCEPTIN [Suspect]
     Active Substance: TRASTUZUMAB
     Dosage: UNK (3 WEEKS)
     Dates: start: 20221214, end: 20221230
  22. HERCEPTIN [Suspect]
     Active Substance: TRASTUZUMAB
     Dosage: UNK (3 WEEKS)
     Dates: start: 2019, end: 20190729
  23. HERCEPTIN [Suspect]
     Active Substance: TRASTUZUMAB
     Dosage: UNK, Q3W
     Dates: start: 20180529, end: 20190117
  24. KADCYLA [Suspect]
     Active Substance: ADO-TRASTUZUMAB EMTANSINE
     Indication: HER2 positive breast cancer
     Dosage: 190.8 MILLIGRAM (3 WEEKS)
     Dates: start: 20170614, end: 20180308
  25. KADCYLA [Suspect]
     Active Substance: ADO-TRASTUZUMAB EMTANSINE
     Dosage: 190.8 MILLIGRAM (3 WEEKS)
     Dates: start: 20180417, end: 20180508
  26. TYKERB [Suspect]
     Active Substance: LAPATINIB DITOSYLATE
     Indication: HER2 positive breast cancer
     Dosage: 1000 MICROGRAM, QD
     Route: 061
     Dates: start: 20190207, end: 20190723
  27. TYKERB [Suspect]
     Active Substance: LAPATINIB DITOSYLATE
     Dosage: 1000 MG, QD (MOST RECENT DOSE: 23/JUL/2019)
     Route: 061
     Dates: start: 20190207, end: 20190723
  28. PERJETA [Suspect]
     Active Substance: PERTUZUMAB
     Indication: HER2 positive breast cancer
     Dosage: UNK, Q3W
     Dates: start: 20190903, end: 20200218
  29. PERJETA [Suspect]
     Active Substance: PERTUZUMAB
     Dosage: UNK (3 WEEKS)
  30. FLUOROPLEX [Suspect]
     Active Substance: FLUOROURACIL
     Indication: HER2 positive breast cancer
     Dosage: UNK, Q3W(MOST RECENT DOSE: 03/JAN/2021)
     Dates: start: 20201013, end: 20210103
  31. DOCETAXEL [Suspect]
     Active Substance: DOCETAXEL
     Indication: HER2 positive breast cancer
     Dosage: UNK (3 WEEKS), TAXOTERE SOLUTION FOR INJECTION
     Dates: start: 20210104, end: 20210629
  32. TREXALL [Suspect]
     Active Substance: METHOTREXATE SODIUM
     Indication: HER2 positive breast cancer
     Dosage: UNK, Q3W
     Dates: start: 20201013, end: 20210103
  33. FAM-TRASTUZUMAB DERUXTECAN-NXKI [Suspect]
     Active Substance: FAM-TRASTUZUMAB DERUXTECAN-NXKI
     Indication: HER2 positive breast cancer
     Dosage: 190.8 UG, Q3W (18/MAR/2018)
     Dates: start: 20170614
  34. FAM-TRASTUZUMAB DERUXTECAN-NXKI [Suspect]
     Active Substance: FAM-TRASTUZUMAB DERUXTECAN-NXKI
     Dosage: UNK, Q3W
     Dates: start: 20210714, end: 20221124
  35. FAM-TRASTUZUMAB DERUXTECAN-NXKI [Suspect]
     Active Substance: FAM-TRASTUZUMAB DERUXTECAN-NXKI
     Dosage: UNK
     Dates: start: 20190308, end: 20190729
  36. FAM-TRASTUZUMAB DERUXTECAN-NXKI [Suspect]
     Active Substance: FAM-TRASTUZUMAB DERUXTECAN-NXKI
     Dosage: 190.8 MICROGRAM (29/JUL/2019)
     Dates: start: 20190308, end: 20190308
  37. CYTOXAN [Suspect]
     Active Substance: CYCLOPHOSPHAMIDE
     Indication: HER2 positive breast cancer
     Dosage: Q3W (MOST RECENT DOSE: 03/JAN/2021)
     Dates: start: 20201013, end: 20210103
  38. PARAPLATIN [Suspect]
     Active Substance: CARBOPLATIN
     Indication: HER2 positive breast cancer
     Dosage: UNK, Q3W
     Dates: start: 20221214, end: 20221230
  39. TAXOL [Suspect]
     Active Substance: PACLITAXEL
     Indication: HER2 positive breast cancer
     Dosage: UNK UNK, Q3W
     Dates: start: 20190813, end: 20200211
  40. FILGRASTIM [Suspect]
     Active Substance: FILGRASTIM
     Indication: Product used for unknown indication
     Dosage: ONGOING = NOT CHECKED
     Dates: start: 20221230, end: 20221230
  41. FILGRASTIM [Suspect]
     Active Substance: FILGRASTIM
     Dosage: UNK
     Dates: start: 20221230, end: 20221230
  42. CARBOPLATIN [Suspect]
     Active Substance: CARBOPLATIN
     Indication: HER2 positive breast cancer
     Dosage: UNK, Q3W
     Dates: start: 20221214, end: 20221230
  43. CALCIUM CARBONATE [Concomitant]
     Active Substance: CALCIUM CARBONATE
     Indication: Product used for unknown indication
     Dosage: ONGOING = NOT CHECKED
  44. CALCIUM CARBONATE [Concomitant]
     Active Substance: CALCIUM CARBONATE
     Dosage: UNK
  45. CALCIUM CARBONATE [Concomitant]
     Active Substance: CALCIUM CARBONATE
     Dosage: UNK
     Dates: start: 20171129, end: 20221230
  46. CALCIUM CARBONATE [Concomitant]
     Active Substance: CALCIUM CARBONATE
     Dosage: ONGOING = NOT CHECKEDUNK
  47. CALCIUM CARBONATE [Concomitant]
     Active Substance: CALCIUM CARBONATE
     Dosage: ONGOING = NOT CHECKEDUNK
  48. CALCIUM CARBONATE [Concomitant]
     Active Substance: CALCIUM CARBONATE
     Dosage: ONGOING = NOT CHECKEDUNK
  49. CALCIUM CARBONATE [Concomitant]
     Active Substance: CALCIUM CARBONATE
     Dosage: ONGOING = NOT CHECKEDUNK
  50. CALCIUM CARBONATE [Concomitant]
     Active Substance: CALCIUM CARBONATE
     Dosage: ONGOING = NOT CHECKED
  51. CALCIUM CARBONATE [Concomitant]
     Active Substance: CALCIUM CARBONATE
     Dosage: ONGOING = NOT CHECKED
  52. OXYCODONE [Concomitant]
     Active Substance: OXYCODONE
     Indication: Product used for unknown indication
     Dosage: 5 MILLIGRAM (ONGOING = NOT CHECKED)
  53. OXYCODONE [Concomitant]
     Active Substance: OXYCODONE
     Dosage: 5 MG
  54. OXYCODONE [Concomitant]
     Active Substance: OXYCODONE
     Dosage: 5 MILLIGRAM
  55. OXYCODONE [Concomitant]
     Active Substance: OXYCODONE
     Dosage: 5 MILLIGRAM
  56. OXYCODONE [Concomitant]
     Active Substance: OXYCODONE
     Dosage: ONGOING = NOT CHECKEDUNK
     Dates: start: 20170529, end: 20221230
  57. OXYCODONE [Concomitant]
     Active Substance: OXYCODONE
     Dosage: ONGOING = NOT CHECKEDUNK
     Dates: start: 20170529, end: 20221230
  58. OXYCODONE [Concomitant]
     Active Substance: OXYCODONE
     Dosage: ONGOING = NOT CHECKEDUNK
     Dates: start: 20170529, end: 20221230
  59. OXYCODONE [Concomitant]
     Active Substance: OXYCODONE
     Dosage: ONGOING = NOT CHECKED
     Dates: start: 20170529, end: 20221230
  60. OXYCODONE [Concomitant]
     Active Substance: OXYCODONE
     Dosage: ONGOING = NOT CHECKED
     Dates: start: 20170529, end: 20221230
  61. NALOXONE HYDROCHLORIDE\OXYCODONE HYDROCHLORIDE [Concomitant]
     Active Substance: NALOXONE HYDROCHLORIDE\OXYCODONE HYDROCHLORIDE
     Indication: Product used for unknown indication
     Dosage: 2.5 MILLIGRAM
     Dates: start: 20170529, end: 20221230
  62. NALOXONE HYDROCHLORIDE\OXYCODONE HYDROCHLORIDE [Concomitant]
     Active Substance: NALOXONE HYDROCHLORIDE\OXYCODONE HYDROCHLORIDE
     Dosage: UNK
     Dates: start: 20170529, end: 20221230
  63. CETIRIZINE [Concomitant]
     Active Substance: CETIRIZINE HYDROCHLORIDE
     Indication: Ejection fraction decreased
     Dosage: ONGOING = NOT CHECKEDUNK
  64. CETIRIZINE [Concomitant]
     Active Substance: CETIRIZINE HYDROCHLORIDE
     Dosage: 10 MG
  65. CETIRIZINE [Concomitant]
     Active Substance: CETIRIZINE HYDROCHLORIDE
     Dosage: 10 MILLIGRAM
  66. CETIRIZINE [Concomitant]
     Active Substance: CETIRIZINE HYDROCHLORIDE
     Dosage: 10 MILLIGRAM
  67. CETIRIZINE [Concomitant]
     Active Substance: CETIRIZINE HYDROCHLORIDE
     Dosage: ONGOING = NOT CHECKEDUNK
  68. CETIRIZINE [Concomitant]
     Active Substance: CETIRIZINE HYDROCHLORIDE
     Dosage: ONGOING = NOT CHECKEDUNK
  69. CETIRIZINE [Concomitant]
     Active Substance: CETIRIZINE HYDROCHLORIDE
     Dosage: ONGOING = NOT CHECKEDUNK
  70. CETIRIZINE [Concomitant]
     Active Substance: CETIRIZINE HYDROCHLORIDE
     Dosage: ONGOING = NOT CHECKED
  71. CETIRIZINE [Concomitant]
     Active Substance: CETIRIZINE HYDROCHLORIDE
     Dosage: ONGOING = NOT CHECKED
  72. ZOLEDRONIC ACID [Concomitant]
     Active Substance: ZOLEDRONIC ACID
     Indication: Product used for unknown indication
     Dosage: UNK
     Dates: start: 20170509, end: 20221230
  73. ZOLEDRONIC ACID [Concomitant]
     Active Substance: ZOLEDRONIC ACID
     Dosage: ONGOING = NOT CHECKEDUNK
     Dates: start: 20170509, end: 20221230
  74. ZOLEDRONIC ACID [Concomitant]
     Active Substance: ZOLEDRONIC ACID
     Dosage: ONGOING = NOT CHECKEDUNK
     Dates: start: 20170509, end: 20221230
  75. ZOLEDRONIC ACID [Concomitant]
     Active Substance: ZOLEDRONIC ACID
     Dosage: ONGOING = NOT CHECKEDUNK
     Dates: start: 20170509, end: 20221230
  76. ZOLEDRONIC ACID [Concomitant]
     Active Substance: ZOLEDRONIC ACID
     Dosage: ONGOING = NOT CHECKEDUNK
     Dates: start: 20170509, end: 20221230
  77. ZOLEDRONIC ACID [Concomitant]
     Active Substance: ZOLEDRONIC ACID
     Dosage: ONGOING = NOT CHECKED
     Dates: start: 20170509, end: 20221230
  78. ZOLEDRONIC ACID [Concomitant]
     Active Substance: ZOLEDRONIC ACID
     Dosage: ONGOING = NOT CHECKED
     Dates: start: 20170509, end: 20221230
  79. ACETYLCYSTEINE [Concomitant]
     Active Substance: ACETYLCYSTEINE
     Indication: Product used for unknown indication
     Dosage: ONGOING = NOT CHECKED
  80. ACETYLCYSTEINE [Concomitant]
     Active Substance: ACETYLCYSTEINE
     Dosage: UNK
  81. ACETYLCYSTEINE [Concomitant]
     Active Substance: ACETYLCYSTEINE
     Dosage: UNK (3 WEEKS)
  82. LOPERAMIDE [Concomitant]
     Active Substance: LOPERAMIDE
     Indication: Product used for unknown indication
     Dosage: ONGOING = NOT CHECKEDUNK
  83. LOPERAMIDE [Concomitant]
     Active Substance: LOPERAMIDE
     Dosage: 2 MILLIGRAM
  84. LOPERAMIDE [Concomitant]
     Active Substance: LOPERAMIDE
     Dosage: ONGOING = NOT CHECKEDUNK
  85. LOPERAMIDE [Concomitant]
     Active Substance: LOPERAMIDE
     Dosage: ONGOING = NOT CHECKEDUNK
  86. LOPERAMIDE [Concomitant]
     Active Substance: LOPERAMIDE
     Dosage: ONGOING = NOT CHECKEDUNK
  87. LOPERAMIDE [Concomitant]
     Active Substance: LOPERAMIDE
     Dosage: ONGOING = NOT CHECKED
  88. LOPERAMIDE [Concomitant]
     Active Substance: LOPERAMIDE
     Dosage: ONGOING = NOT CHECKED
  89. PREGABALIN [Concomitant]
     Active Substance: PREGABALIN
     Indication: Product used for unknown indication
     Dosage: ONGOING = NOT CHECKED
  90. PREGABALIN [Concomitant]
     Active Substance: PREGABALIN
     Dosage: UNK
  91. PREGABALIN [Concomitant]
     Active Substance: PREGABALIN
     Dosage: ONGOING = NOT CHECKEDUNK
  92. PREGABALIN [Concomitant]
     Active Substance: PREGABALIN
     Dosage: ONGOING = NOT CHECKEDUNK
  93. PREGABALIN [Concomitant]
     Active Substance: PREGABALIN
     Dosage: ONGOING = NOT CHECKEDUNK
  94. PREGABALIN [Concomitant]
     Active Substance: PREGABALIN
     Dosage: ONGOING = NOT CHECKEDUNK
  95. PREGABALIN [Concomitant]
     Active Substance: PREGABALIN
     Dosage: ONGOING = NOT CHECKED
  96. PREGABALIN [Concomitant]
     Active Substance: PREGABALIN
     Dosage: ONGOING = NOT CHECKED
  97. PYRIDOXINE [Concomitant]
     Active Substance: PYRIDOXINE
     Indication: Product used for unknown indication
     Dosage: ONGOING = NOT CHECKED
  98. PYRIDOXINE [Concomitant]
     Active Substance: PYRIDOXINE
     Dosage: UNK
  99. ACETAMINOPHEN [Concomitant]
     Active Substance: ACETAMINOPHEN
     Indication: Product used for unknown indication
     Dosage: ONGOING = NOT CHECKED
  100. ACETAMINOPHEN [Concomitant]
     Active Substance: ACETAMINOPHEN
     Dosage: 1000 MG
  101. ACETAMINOPHEN [Concomitant]
     Active Substance: ACETAMINOPHEN
     Dosage: ONGOING = NOT CHECKED
  102. BACIDERMA [Concomitant]
     Indication: Product used for unknown indication
     Dosage: ONGOING = NOT CHECKED
  103. BACIDERMA [Concomitant]
     Dosage: 10 G
  104. BACIDERMA [Concomitant]
     Dosage: ONGOING = NOT CHECKED
  105. IPRATROPIUM BROMIDE [Concomitant]
     Active Substance: IPRATROPIUM BROMIDE
     Indication: Product used for unknown indication
     Dosage: ONGOING = NOT CHECKED, 1.00 AMPULE
  106. IPRATROPIUM BROMIDE [Concomitant]
     Active Substance: IPRATROPIUM BROMIDE
     Dosage: UNK
  107. IPRATROPIUM BROMIDE [Concomitant]
     Active Substance: IPRATROPIUM BROMIDE
     Dosage: ONGOING = NOT CHECKED, 1.00 AMPULEUNK
  108. IPRATROPIUM BROMIDE [Concomitant]
     Active Substance: IPRATROPIUM BROMIDE
     Dosage: ONGOING = NOT CHECKED, 1.00 AMPULEUNK
  109. IPRATROPIUM BROMIDE [Concomitant]
     Active Substance: IPRATROPIUM BROMIDE
     Dosage: ONGOING = NOT CHECKED, 1.00 AMPULEUNK
  110. IPRATROPIUM BROMIDE [Concomitant]
     Active Substance: IPRATROPIUM BROMIDE
     Dosage: ONGOING = NOT CHECKED, 1.00 AMPULEUNK
  111. IPRATROPIUM BROMIDE [Concomitant]
     Active Substance: IPRATROPIUM BROMIDE
     Dosage: ONGOING = NOT CHECKED, 1.00 AMPULE
  112. IPRATROPIUM BROMIDE [Concomitant]
     Active Substance: IPRATROPIUM BROMIDE
     Dosage: ONGOING = NOT CHECKED, 1.00 AMPULE
  113. RAMIPRIL [Concomitant]
     Active Substance: RAMIPRIL
     Indication: Ejection fraction decreased
     Dosage: UNK
     Dates: start: 20180308, end: 20221230
  114. RAMIPRIL [Concomitant]
     Active Substance: RAMIPRIL
     Dosage: ONGOING = NOT CHECKED
     Dates: start: 20180308, end: 20221230
  115. RAMIPRIL [Concomitant]
     Active Substance: RAMIPRIL
     Dosage: ONGOING = NOT CHECKED
     Dates: start: 20180308, end: 20221230
  116. METOCLOPRAMIDE [Concomitant]
     Active Substance: METOCLOPRAMIDE
     Indication: Product used for unknown indication
     Dosage: 10 MILLIGRAM (ONGOING = NOT CHECKED)
  117. METOCLOPRAMIDE [Concomitant]
     Active Substance: METOCLOPRAMIDE
     Dosage: 10 MILLIGRAM
  118. CALCIUM\CHOLECALCIFEROL [Concomitant]
     Active Substance: CALCIUM\CHOLECALCIFEROL
     Indication: HER2 positive breast cancer
     Dosage: UNK
     Dates: start: 20170509, end: 20221230
  119. CALCIUM\CHOLECALCIFEROL [Concomitant]
     Active Substance: CALCIUM\CHOLECALCIFEROL
     Dosage: UNK
     Dates: start: 20180308, end: 20221230
  120. CALCIUM\CHOLECALCIFEROL [Concomitant]
     Active Substance: CALCIUM\CHOLECALCIFEROL
     Dosage: UNK
     Dates: start: 20170509, end: 20221230
  121. CALCIUM\CHOLECALCIFEROL [Concomitant]
     Active Substance: CALCIUM\CHOLECALCIFEROL
     Dosage: UNK
     Dates: start: 20170509, end: 20221230
  122. NALOXONE [Concomitant]
     Active Substance: NALOXONE
     Indication: Product used for unknown indication
     Dosage: 2.5 MILLIGRAM (ONGOING = NOT CHECKED)
  123. NALOXONE [Concomitant]
     Active Substance: NALOXONE
     Dosage: 2.5 MILLIGRAM
  124. BUDESONIDE [Concomitant]
     Active Substance: BUDESONIDE
     Indication: Product used for unknown indication
     Dosage: ONGOING = NOT CHECKED
  125. BUDESONIDE [Concomitant]
     Active Substance: BUDESONIDE
     Dosage: UNK
  126. IVABRADINE [Concomitant]
     Active Substance: IVABRADINE
     Indication: Ejection fraction decreased
     Dosage: UNK
     Route: 065
     Dates: start: 20180308, end: 20221230
  127. IVABRADINE [Concomitant]
     Active Substance: IVABRADINE
     Dosage: UNK
     Dates: start: 20180308, end: 20221230
  128. IVABRADINE [Concomitant]
     Active Substance: IVABRADINE
     Dosage: UNK
     Dates: start: 20180308, end: 20221230
  129. IVABRADINE [Concomitant]
     Active Substance: IVABRADINE
     Dosage: UNK
     Dates: start: 20180308, end: 20221230
  130. IVABRADINE [Concomitant]
     Active Substance: IVABRADINE
     Dosage: UNK
     Dates: start: 20180308, end: 20221230
  131. IVABRADINE [Concomitant]
     Active Substance: IVABRADINE
     Dosage: UNK
     Dates: start: 20180308, end: 20221230
  132. IVABRADINE [Concomitant]
     Active Substance: IVABRADINE
     Dosage: UNK
     Dates: start: 20180308, end: 20221230
  133. IVABRADINE [Concomitant]
     Active Substance: IVABRADINE
     Dosage: UNK
     Dates: start: 20180308, end: 20221230
  134. BISOPROLOL [Concomitant]
     Active Substance: BISOPROLOL
     Indication: Product used for unknown indication
     Dosage: UNK
     Dates: start: 20171129, end: 20221230
  135. BISOPROLOL [Concomitant]
     Active Substance: BISOPROLOL
     Dosage: UNK
  136. BISOPROLOL [Concomitant]
     Active Substance: BISOPROLOL
     Dosage: ONGOING = NOT CHECKED
     Dates: start: 20171129, end: 20221230
  137. BISOPROLOL [Concomitant]
     Active Substance: BISOPROLOL
     Dosage: ONGOING = NOT CHECKED
     Dates: start: 20171129, end: 20221230
  138. CHOLECALCIFEROL [Concomitant]
     Active Substance: CHOLECALCIFEROL
     Indication: Product used for unknown indication
     Dosage: 400 INTERNATIONAL UNIT (ONGOING = NOT CHECKED)
     Dates: start: 20170509, end: 20221230
  139. CHOLECALCIFEROL [Concomitant]
     Active Substance: CHOLECALCIFEROL
     Dosage: 400 INTERNATIONAL UNIT
  140. CHOLECALCIFEROL [Concomitant]
     Active Substance: CHOLECALCIFEROL
     Dosage: 400 IU (400 INTERNATIONAL UNIT)
  141. CHOLECALCIFEROL [Concomitant]
     Active Substance: CHOLECALCIFEROL
     Dosage: 400 INTERNATIONAL UNIT
  142. CHOLECALCIFEROL [Concomitant]
     Active Substance: CHOLECALCIFEROL
     Dosage: 400 INTERNATIONAL UNIT
  143. CHOLECALCIFEROL [Concomitant]
     Active Substance: CHOLECALCIFEROL
     Dosage: 400 INTERNATIONAL UNIT
  144. CHOLECALCIFEROL [Concomitant]
     Active Substance: CHOLECALCIFEROL
     Dosage: 400 INTERNATIONAL UNIT
  145. CHOLECALCIFEROL [Concomitant]
     Active Substance: CHOLECALCIFEROL
     Dosage: ONGOING = NOT CHECKEDUNK
  146. CHOLECALCIFEROL [Concomitant]
     Active Substance: CHOLECALCIFEROL
     Dosage: ONGOING = NOT CHECKEDUNK
  147. CHOLECALCIFEROL [Concomitant]
     Active Substance: CHOLECALCIFEROL
     Dosage: ONGOING = NOT CHECKEDUNK
  148. CHOLECALCIFEROL [Concomitant]
     Active Substance: CHOLECALCIFEROL
     Dosage: ONGOING = NOT CHECKEDUNK
  149. CHOLECALCIFEROL [Concomitant]
     Active Substance: CHOLECALCIFEROL
     Dosage: ONGOING = NOT CHECKED
  150. CHOLECALCIFEROL [Concomitant]
     Active Substance: CHOLECALCIFEROL
     Dosage: ONGOING = NOT CHECKED
  151. CHOLECALCIFEROL [Concomitant]
     Active Substance: CHOLECALCIFEROL
     Dosage: ONGOING = NOT CHECKED
  152. LEVOCETIRIZINE [Concomitant]
     Active Substance: LEVOCETIRIZINE
     Indication: Product used for unknown indication
     Dosage: UNK
  153. LEVOCETIRIZINE [Concomitant]
     Active Substance: LEVOCETIRIZINE
     Dosage: UNK
  154. LEVOCETIRIZINE [Concomitant]
     Active Substance: LEVOCETIRIZINE
     Dosage: UNK
  155. LEVOCETIRIZINE [Concomitant]
     Active Substance: LEVOCETIRIZINE
     Dosage: UNK
  156. LEVOCETIRIZINE [Concomitant]
     Active Substance: LEVOCETIRIZINE
     Dosage: UNK
  157. LEVOCETIRIZINE [Concomitant]
     Active Substance: LEVOCETIRIZINE
     Dosage: UNK
  158. FERRIC CARBOXYMALTOSE [Concomitant]
     Active Substance: FERRIC CARBOXYMALTOSE
     Indication: Product used for unknown indication
     Dosage: UNK
  159. FERRIC CARBOXYMALTOSE [Concomitant]
     Active Substance: FERRIC CARBOXYMALTOSE
     Dosage: UNK
  160. FERRIC CARBOXYMALTOSE [Concomitant]
     Active Substance: FERRIC CARBOXYMALTOSE
     Dosage: UNK
  161. FERRIC CARBOXYMALTOSE [Concomitant]
     Active Substance: FERRIC CARBOXYMALTOSE
     Dosage: UNK
  162. FERRIC CARBOXYMALTOSE [Concomitant]
     Active Substance: FERRIC CARBOXYMALTOSE
     Dosage: UNK
  163. FERRIC CARBOXYMALTOSE [Concomitant]
     Active Substance: FERRIC CARBOXYMALTOSE
     Dosage: UNK
  164. PREDNISONE [Concomitant]
     Active Substance: PREDNISONE
     Indication: Product used for unknown indication
     Dosage: UNK
  165. PREDNISONE [Concomitant]
     Active Substance: PREDNISONE
     Dosage: UNK
  166. AZITHROMYCIN [Concomitant]
     Active Substance: AZITHROMYCIN
     Indication: Product used for unknown indication
     Dosage: UNK
  167. AZITHROMYCIN [Concomitant]
     Active Substance: AZITHROMYCIN
     Dosage: UNK
  168. AZITHROMYCIN [Concomitant]
     Active Substance: AZITHROMYCIN
     Dosage: UNK
  169. AZITHROMYCIN [Concomitant]
     Active Substance: AZITHROMYCIN
     Dosage: UNK
  170. AZITHROMYCIN [Concomitant]
     Active Substance: AZITHROMYCIN
     Dosage: UNK
  171. AZITHROMYCIN [Concomitant]
     Active Substance: AZITHROMYCIN
     Dosage: UNK
  172. CARBOPLATIN [Concomitant]
     Active Substance: CARBOPLATIN
     Indication: HER2 positive breast cancer
     Dosage: UNK
     Dates: start: 20221214, end: 20221230

REACTIONS (4)
  - Pancytopenia [Fatal]
  - Febrile neutropenia [Fatal]
  - Pyrexia [Fatal]
  - Pneumonia [Fatal]

NARRATIVE: CASE EVENT DATE: 20221227
